FAERS Safety Report 24405795 (Version 1)
Quarter: 2024Q4

REPORT INFORMATION
  Report Type: Spontaneous
  Country: IT (occurrence: IT)
  Receive Date: 20241007
  Receipt Date: 20241007
  Transmission Date: 20250115
  Serious: Yes (Hospitalization)
  Sender: FRESENIUS KABI
  Company Number: None

PATIENT
  Age: 55 Year
  Sex: Female

DRUGS (7)
  1. ACETAMINOPHEN [Suspect]
     Active Substance: ACETAMINOPHEN
     Indication: Pyrexia
     Dosage: PARACETAMOL 1 G?FORM OF ADMIN: SOLUTION FOR INJECTION
     Route: 042
     Dates: start: 20240705, end: 20240705
  2. METOCLOPRAMIDE [Suspect]
     Active Substance: METOCLOPRAMIDE
     Indication: Vomiting
     Dosage: METOCLOPRAMIDE 10 MG?FOA: SOLUTION FOR INJECTION
     Route: 042
     Dates: start: 20240705, end: 20240705
  3. LOSARTAN + HYDROCHLOROTHIAZIDE [HYDROCHLOROTHIAZIDE, LOSARTAN] [Concomitant]
     Indication: Hypertension
     Dosage: DOSAGE NOT KNOWN?FOA: TABLET
     Route: 048
  4. TRIMBOW [BECLOMETHASONE DIPROPIONATE, FORMOTEROL FUMARATE DIHYDRATE, G [Concomitant]
     Indication: Asthma
     Dosage: 2 INHALATIONS AT 8AM AND 2 INHALATIONS AT 8PM?FOA: INHALATION SOLUTION
     Route: 055
  5. MONTELUKAST [MONTELUKAST] [Concomitant]
     Indication: Asthma
     Dosage: FOA: TABLET
     Route: 048
  6. FASENRA [BENRALIZUMAB] [Concomitant]
     Indication: Asthma
     Dosage: FOA: SOLUTION FOR INJECTION
     Route: 058
     Dates: start: 20240112, end: 20240531
  7. VENTOLIN [Concomitant]
     Active Substance: ALBUTEROL SULFATE
     Indication: Asthma
     Dosage: AS NEEDED?FOA: INHALATION SOLUTION
     Route: 055

REACTIONS (2)
  - Drug hypersensitivity [Recovered/Resolved]
  - Anaphylactic reaction [Recovered/Resolved]

NARRATIVE: CASE EVENT DATE: 20240705
